FAERS Safety Report 5512188-X (Version None)
Quarter: 2007Q4

REPORT INFORMATION
  Report Type: 
  Country: None (occurrence: None)
  Receive Date: 20071112
  Receipt Date: 20071102
  Transmission Date: 20080405
  Serious: Yes (Other)
  Sender: FDA-Public Use
  Company Number: PHBS2007JP18497

PATIENT
  Age: 71 Year
  Sex: Female

DRUGS (8)
  1. DIOVAN [Suspect]
     Indication: HYPERTENSION
     Dosage: 80 MG, BID
     Route: 048
  2. DIOVAN [Suspect]
     Dosage: 80 MG, QD
     Route: 048
  3. AMLODIN [Concomitant]
     Dosage: 5 MG, UNK
  4. FAMOTIDINE [Concomitant]
     Dosage: 20 MG, UNK
  5. DEPAS [Concomitant]
     Dosage: 1 DF, UNK
  6. MUCODYNE [Concomitant]
     Dosage: 3 DF, UNK
  7. CILOSTAZOL [Concomitant]
     Dosage: 100 MG, UNK
  8. DISOPYRAMIDE [Concomitant]

REACTIONS (3)
  - HEART RATE INCREASED [None]
  - TACHYCARDIA [None]
  - VENTRICULAR EXTRASYSTOLES [None]
